FAERS Safety Report 14676415 (Version 1)
Quarter: 2018Q1

REPORT INFORMATION
  Report Type: Spontaneous
  Country: CA (occurrence: CA)
  Receive Date: 20180323
  Receipt Date: 20180323
  Transmission Date: 20180509
  Serious: Yes (Hospitalization)
  Sender: FDA-Public Use
  Company Number: CA-TEVA-2018-CA-873967

PATIENT
  Age: 33 Year
  Sex: Female
  Weight: 85 kg

DRUGS (16)
  1. EFFEXOR XR [Concomitant]
     Active Substance: VENLAFAXINE HYDROCHLORIDE
     Route: 065
  2. LECTOPAM [Concomitant]
     Active Substance: BROMAZEPAM
     Route: 065
  3. TYLENOL [Concomitant]
     Active Substance: ACETAMINOPHEN
     Route: 065
  4. RESTORIL [Concomitant]
     Active Substance: TEMAZEPAM
     Route: 065
  5. TRAZODONE [Concomitant]
     Active Substance: TRAZODONE HYDROCHLORIDE
     Route: 065
  6. WELLBUTRIN XL [Concomitant]
     Active Substance: BUPROPION HYDROCHLORIDE
     Route: 065
  7. ZYPREXA [Concomitant]
     Active Substance: OLANZAPINE
     Route: 065
  8. DIVALPROEX [Suspect]
     Active Substance: DIVALPROEX SODIUM
     Indication: BORDERLINE PERSONALITY DISORDER
     Dosage: DOSE: 1250.
     Route: 048
  9. NEURONTIN [Concomitant]
     Active Substance: GABAPENTIN
     Route: 065
  10. CARDIZEM CD [Concomitant]
     Active Substance: DILTIAZEM HYDROCHLORIDE
     Route: 065
  11. FRISIUM [Concomitant]
     Active Substance: CLOBAZAM
     Route: 065
  12. SANDOMIGRAN [Concomitant]
     Active Substance: PIZOTYLINE
     Route: 065
  13. SYNTHROID [Concomitant]
     Active Substance: LEVOTHYROXINE SODIUM
     Route: 065
  14. CYMBALTA [Concomitant]
     Active Substance: DULOXETINE HYDROCHLORIDE
     Route: 065
  15. NEXIUM [Concomitant]
     Active Substance: ESOMEPRAZOLE MAGNESIUM
     Route: 065
  16. TOPAMAX [Concomitant]
     Active Substance: TOPIRAMATE
     Route: 065

REACTIONS (2)
  - Toxicity to various agents [Recovered/Resolved]
  - Hyperammonaemia [Recovered/Resolved]
